FAERS Safety Report 24094538 (Version 1)
Quarter: 2024Q3

REPORT INFORMATION
  Report Type: Spontaneous
  Country: US (occurrence: US)
  Receive Date: 20240716
  Receipt Date: 20240716
  Transmission Date: 20241016
  Serious: No
  Sender: APOTEX
  Company Number: US-APOTEX-2023AP014100

PATIENT
  Age: 73 Year
  Sex: Female

DRUGS (6)
  1. CARBIDOPA\LEVODOPA [Suspect]
     Active Substance: CARBIDOPA\LEVODOPA
     Indication: Tremor
     Dosage: UNK
     Route: 065
  2. CARBIDOPA\LEVODOPA [Suspect]
     Active Substance: CARBIDOPA\LEVODOPA
     Indication: Parkinson^s disease
  3. TRIHEXYPHENIDYL [Concomitant]
     Active Substance: TRIHEXYPHENIDYL
     Indication: Tremor
     Dosage: UNK
     Route: 065
  4. TRIHEXYPHENIDYL [Concomitant]
     Active Substance: TRIHEXYPHENIDYL
     Indication: Parkinson^s disease
  5. AMANTADINE [Concomitant]
     Active Substance: AMANTADINE
     Indication: Tremor
     Dosage: UNK
     Route: 065
  6. AMANTADINE [Concomitant]
     Active Substance: AMANTADINE
     Indication: Parkinson^s disease

REACTIONS (3)
  - Hyperkinesia [Recovering/Resolving]
  - Condition aggravated [Recovering/Resolving]
  - Dyskinesia [Recovering/Resolving]
